FAERS Safety Report 5812119-9 (Version None)
Quarter: 2008Q3

REPORT INFORMATION
  Report Type: 
  Country: None (occurrence: None)
  Receive Date: 20080716
  Receipt Date: 20080711
  Transmission Date: 20090109
  Serious: Yes (Hospitalization, Other)
  Sender: FDA-Public Use
  Company Number: US-WATSON-2008-04160

PATIENT

DRUGS (4)
  1. TRAZODONE HYDROCHLORIDE (WATSON LABORATORIES) [Suspect]
     Indication: POST-TRAUMATIC STRESS DISORDER
     Dosage: UNK
     Route: 048
     Dates: start: 20070101
  2. BUSPAR [Concomitant]
     Indication: ANXIETY
     Dosage: UNK
     Route: 048
  3. CLONAZEPAM [Concomitant]
     Indication: ANXIETY
     Dosage: UNK
     Route: 048
  4. TRILEPTAL [Concomitant]
     Indication: CONVULSION
     Dosage: UNK
     Route: 048

REACTIONS (12)
  - AGGRESSION [None]
  - ANXIETY [None]
  - CARDIAC ARREST [None]
  - CONDITION AGGRAVATED [None]
  - FOAMING AT MOUTH [None]
  - HYPOTENSION [None]
  - MALAISE [None]
  - PANIC ATTACK [None]
  - SUICIDAL IDEATION [None]
  - SYNCOPE [None]
  - SYNCOPE VASOVAGAL [None]
  - UNRESPONSIVE TO STIMULI [None]
